FAERS Safety Report 25256482 (Version 1)
Quarter: 2025Q2

REPORT INFORMATION
  Report Type: Spontaneous
  Country: US (occurrence: US)
  Receive Date: 20250430
  Receipt Date: 20250430
  Transmission Date: 20250716
  Serious: Yes (Other)
  Sender: AVEO PHARMACEUTICALS
  Company Number: US-AVEO PHARMACEUTICALS, INC.-2025-AVEO-US000308

PATIENT
  Sex: Male

DRUGS (19)
  1. FOTIVDA [Suspect]
     Active Substance: TIVOZANIB HYDROCHLORIDE
     Indication: Renal cell carcinoma
     Dosage: 1.34 MG, DAILY FOR 21 DAYS WITH 7 DAYS OFF (28-DAY CYCLE)
     Dates: end: 20250416
  2. DEXAMETHASONE [Concomitant]
     Active Substance: DEXAMETHASONE
  3. GABAPENTIN [Concomitant]
     Active Substance: GABAPENTIN
  4. METFORMIN [Concomitant]
     Active Substance: METFORMIN HYDROCHLORIDE
  5. FINASTERIDE [Concomitant]
     Active Substance: FINASTERIDE
  6. VITAMINS [Concomitant]
     Active Substance: VITAMINS
  7. OMEGA 3 [Concomitant]
     Active Substance: CAPSAICIN
  8. STOOL SOFTENER (DOCUSATE) [Concomitant]
     Active Substance: DOCUSATE
  9. XGEVA [Concomitant]
     Active Substance: DENOSUMAB
  10. LUBIPROSTONE [Concomitant]
     Active Substance: LUBIPROSTONE
  11. TRAMADOL [Concomitant]
     Active Substance: TRAMADOL
  12. OXYCODONE [Concomitant]
     Active Substance: OXYCODONE
  13. SENNA [Concomitant]
     Active Substance: SENNOSIDES
  14. MIRALAX [Concomitant]
     Active Substance: POLYETHYLENE GLYCOL 3350
  15. BENEFIBER [Concomitant]
     Active Substance: STARCH, WHEAT
  16. TYLENOL [Concomitant]
     Active Substance: ACETAMINOPHEN
  17. METOCLOPRAMIDE [Concomitant]
     Active Substance: METOCLOPRAMIDE
  18. AMLODIPINE [Concomitant]
     Active Substance: AMLODIPINE BESYLATE
  19. UNSPECIFIED INGREDIENT [Concomitant]
     Active Substance: UNSPECIFIED INGREDIENT

REACTIONS (1)
  - Pancreatitis [Unknown]
